FAERS Safety Report 9953424 (Version 1)
Quarter: 2014Q1

REPORT INFORMATION
  Report Type: Report from Study
  Country: US (occurrence: US)
  Receive Date: 20140304
  Receipt Date: 20140304
  Transmission Date: 20141002
  Serious: No
  Sender: FDA-Public Use
  Company Number: US-ABBVIE-13P-163-1075558-00

PATIENT
  Age: 38 Year
  Sex: Female

DRUGS (4)
  1. HUMIRA [Suspect]
     Indication: CROHN^S DISEASE
     Dosage: LOADING DOSE
     Dates: start: 20130328, end: 20130328
  2. RESTORIL [Concomitant]
     Indication: INSOMNIA
     Dosage: AT BEDTIME
  3. PERCOCET [Concomitant]
     Indication: PAIN
  4. SOMA [Concomitant]
     Indication: PAIN
     Dosage: 325 OR 350 MG

REACTIONS (1)
  - Influenza like illness [Recovered/Resolved]
